FAERS Safety Report 6371736-0 (Version None)
Quarter: 2009Q3

REPORT INFORMATION
  Report Type: 
  Country: None (occurrence: None)
  Receive Date: 20090923
  Receipt Date: 20090914
  Transmission Date: 20100115
  Serious: Yes (Hospitalization)
  Sender: FDA-Public Use
  Company Number: DE-AMGEN-US361961

PATIENT
  Sex: Male
  Weight: 84 kg

DRUGS (6)
  1. ENBREL [Suspect]
     Indication: RHEUMATOID ARTHRITIS
     Route: 058
     Dates: start: 20090710, end: 20090724
  2. NITRENDIPINE [Concomitant]
     Route: 065
  3. METHOTREXATE [Concomitant]
     Indication: RHEUMATOID ARTHRITIS
     Route: 058
     Dates: end: 20090724
  4. RAMIPRIL [Concomitant]
     Indication: HYPERTENSION
     Route: 048
  5. GLUCOCORTICOIDS [Concomitant]
     Dosage: UNKNOWN
     Route: 065
  6. CELEBREX [Concomitant]
     Dosage: UNKNOWN
     Route: 065

REACTIONS (2)
  - ABSCESS LIMB [None]
  - WOUND [None]
